FAERS Safety Report 13621462 (Version 1)
Quarter: 2017Q2

REPORT INFORMATION
  Report Type: Spontaneous
  Country: US (occurrence: US)
  Receive Date: 20170607
  Receipt Date: 20170607
  Transmission Date: 20170830
  Serious: No
  Sender: FDA-Public Use
  Company Number: US-PFIZER INC-2017248255

PATIENT
  Sex: Female

DRUGS (2)
  1. CHANTIX [Suspect]
     Active Substance: VARENICLINE TARTRATE
     Dosage: 1 MG, UNK (CHANTIX COMB FCT 0.5 MG 11X1 BLST AND 1.0 MG 14X2 BLST )
  2. CHANTIX [Suspect]
     Active Substance: VARENICLINE TARTRATE
     Dosage: 0.5 MG, UNK (CHANTIX COMB FCT 0.5 MG 11X1 BLST AND 1.0 MG 14X2 BLST )

REACTIONS (1)
  - Drug ineffective [Unknown]
